FAERS Safety Report 25080255 (Version 1)
Quarter: 2025Q1

REPORT INFORMATION
  Report Type: Report from Study
  Country: US (occurrence: US)
  Receive Date: 20250314
  Receipt Date: 20250314
  Transmission Date: 20250409
  Serious: Yes (Other)
  Sender: ABBVIE
  Company Number: US-ABBVIE-6171148

PATIENT
  Sex: Female

DRUGS (1)
  1. HUMIRA [Suspect]
     Active Substance: ADALIMUMAB
     Indication: Product used for unknown indication
     Route: 058
     Dates: end: 2025

REACTIONS (6)
  - Autoimmune eye disorder [Unknown]
  - Rheumatoid arthritis [Unknown]
  - Mixed connective tissue disease [Unknown]
  - Graves^ disease [Unknown]
  - Adverse drug reaction [Unknown]
  - Injection site pain [Unknown]
